FAERS Safety Report 17511274 (Version 3)
Quarter: 2020Q2

REPORT INFORMATION
  Report Type: Spontaneous
  Country: AT (occurrence: AT)
  Receive Date: 20200306
  Receipt Date: 20200601
  Transmission Date: 20200713
  Serious: Yes (Other)
  Sender: FDA-Public Use
  Company Number: PHHY2019AT091166

PATIENT
  Age: 76 Year
  Sex: Female

DRUGS (13)
  1. POMALIDOMIDE [Suspect]
     Active Substance: POMALIDOMIDE
     Indication: HIGH-GRADE B-CELL LYMPHOMA
     Dosage: 4 MILLIGRAM, D1-21, Q28D
     Route: 048
  2. RITUXIMAB. [Suspect]
     Active Substance: RITUXIMAB
     Indication: OCULAR LYMPHOMA
     Dosage: 375 MG/M2, Q3W
     Route: 042
  3. POMALIDOMIDE [Suspect]
     Active Substance: POMALIDOMIDE
     Indication: OCULAR LYMPHOMA
  4. RITUXIMAB. [Suspect]
     Active Substance: RITUXIMAB
     Indication: HIGH-GRADE B-CELL LYMPHOMA
     Dosage: 0.5 MG, QMO
     Route: 031
  5. CYTARABINE. [Suspect]
     Active Substance: CYTARABINE
     Dosage: BIWEEKLY (CYCLICAL)
     Route: 037
  6. RITUXIMAB. [Suspect]
     Active Substance: RITUXIMAB
     Dosage: 1400 MG Q4W (CYCLICAL)
     Route: 058
  7. METHOTREXATE. [Suspect]
     Active Substance: METHOTREXATE
     Indication: OCULAR LYMPHOMA
     Dosage: 8 G/M2, Q3W
     Route: 042
  8. METHOTREXATE. [Suspect]
     Active Substance: METHOTREXATE
     Dosage: 0.4MG MTX IN 0.1 ML, MONTHLY
     Route: 031
  9. DEXAMETHASONE. [Suspect]
     Active Substance: DEXAMETHASONE
     Indication: OCULAR LYMPHOMA
     Dosage: 20 MG, QW
     Route: 048
  10. OFATUMUMAB [Suspect]
     Active Substance: OFATUMUMAB
     Indication: OCULAR LYMPHOMA
     Dosage: 1000 MG ABS, D1, Q28
     Route: 042
  11. TEMOZOLOMIDE. [Suspect]
     Active Substance: TEMOZOLOMIDE
     Indication: OCULAR LYMPHOMA
     Dosage: 6 CYCLES, D1-5, Q28
     Route: 048
  12. CYTARABINE. [Suspect]
     Active Substance: CYTARABINE
     Indication: OCULAR LYMPHOMA
     Dosage: 2 G/M2
     Route: 042
  13. TEMOZOLOMIDE. [Suspect]
     Active Substance: TEMOZOLOMIDE
     Dosage: (150 MG/M2) D1-5, Q28
     Route: 048

REACTIONS (10)
  - Retinal vascular disorder [Unknown]
  - Ocular lymphoma [Unknown]
  - Off label use [Recovered/Resolved]
  - Pneumonia [Recovered/Resolved]
  - Incorrect route of product administration [Unknown]
  - Therapy non-responder [Unknown]
  - Hypogammaglobulinaemia [Recovered/Resolved]
  - Product use in unapproved indication [Unknown]
  - Adrenal insufficiency [Recovered/Resolved]
  - Neurotoxicity [Recovered/Resolved]
